FAERS Safety Report 16940883 (Version 1)
Quarter: 2019Q4

REPORT INFORMATION
  Report Type: Spontaneous
  Country: US (occurrence: US)
  Receive Date: 20191018
  Receipt Date: 20191018
  Transmission Date: 20200122
  Serious: Yes (Hospitalization)
  Sender: FDA-Public Use
  Company Number: None

PATIENT
  Age: 13 Month
  Sex: Female
  Weight: 5.4 kg

DRUGS (1)
  1. LACTULOSE. [Suspect]
     Active Substance: LACTULOSE
     Indication: CONSTIPATION
     Dosage: ?          OTHER ROUTE:G TUBE?
     Dates: start: 20190301, end: 20191009

REACTIONS (6)
  - Blood glucose decreased [None]
  - Vomiting [None]
  - Dehydration [None]
  - Abdominal pain upper [None]
  - Poor venous access [None]
  - Weight decreased [None]

NARRATIVE: CASE EVENT DATE: 20191007
